FAERS Safety Report 9702025 (Version 1)
Quarter: 2013Q4

REPORT INFORMATION
  Report Type: Spontaneous
  Country: US (occurrence: US)
  Receive Date: 20131121
  Receipt Date: 20131121
  Transmission Date: 20140711
  Serious: No
  Sender: FDA-Public Use
  Company Number: US-BAYER-2013-142316

PATIENT
  Age: 52 Year
  Sex: Female

DRUGS (2)
  1. ALEVE CAPLET [Suspect]
  2. MELOXICAM [Suspect]

REACTIONS (1)
  - Drug ineffective [None]
